FAERS Safety Report 8452141-X (Version None)
Quarter: 2012Q2

REPORT INFORMATION
  Report Type: 
  Country: None (occurrence: None)
  Receive Date: 20120620
  Receipt Date: 20120615
  Transmission Date: 20120825
  Serious: Yes (Death, Hospitalization)
  Sender: FDA-Public Use
  Company Number: FR-GLAXOSMITHKLINE-B0580635A

PATIENT
  Sex: Male

DRUGS (8)
  1. MORPHINE SULFATE [Suspect]
     Indication: PRODUCT USED FOR UNKNOWN INDICATION
     Dosage: 10MG PER DAY
     Route: 048
     Dates: start: 20090217, end: 20090512
  2. DURAGESIC-100 [Suspect]
     Indication: PRODUCT USED FOR UNKNOWN INDICATION
     Dosage: 1UNIT PER DAY
     Route: 023
     Dates: start: 20090414, end: 20090512
  3. ATARAX [Suspect]
     Indication: INSOMNIA
     Dosage: 100MG PER DAY
     Route: 042
     Dates: start: 20090413, end: 20090512
  4. SCOPOLAMINE [Suspect]
     Indication: PRODUCT USED FOR UNKNOWN INDICATION
     Route: 023
     Dates: start: 20090306, end: 20090512
  5. PAROXETINE HCL [Suspect]
     Indication: DEPRESSION
     Route: 048
     Dates: start: 20090412, end: 20090512
  6. NEXIUM [Suspect]
     Indication: OESOPHAGITIS
     Dosage: 40MG PER DAY
     Route: 042
     Dates: start: 20090413, end: 20090420
  7. SOLU-MEDROL [Suspect]
     Indication: DECREASED APPETITE
     Dosage: 40MG PER DAY
     Route: 042
     Dates: start: 20090413, end: 20090512
  8. RADIOTHERAPY [Concomitant]
     Indication: ORAL NEOPLASM
     Route: 065

REACTIONS (2)
  - THROMBOCYTOPENIA [None]
  - ANAEMIA [None]
